FAERS Safety Report 15305976 (Version 2)
Quarter: 2018Q3

REPORT INFORMATION
  Report Type: Spontaneous
  Country: DE (occurrence: DE)
  Receive Date: 20180822
  Receipt Date: 20180828
  Transmission Date: 20181010
  Serious: Yes (Hospitalization)
  Sender: FDA-Public Use
  Company Number: DE-AMGEN-DEUSP2018114991

PATIENT
  Sex: Male

DRUGS (9)
  1. PEGFILGRASTIM [Suspect]
     Active Substance: PEGFILGRASTIM
     Indication: B-CELL LYMPHOMA
     Dosage: 6 MG, ONE TIME DOSE (1 TIME A DAY FOR 1 DAY)
     Route: 058
     Dates: start: 20180805, end: 20180805
  2. RITUXIMAB. [Suspect]
     Active Substance: RITUXIMAB
     Indication: B-CELL LYMPHOMA
     Dosage: 780 MG, ONE TIME DOSE (1 TIME A DAY FOR 1 DAY)
     Route: 042
     Dates: start: 20180730, end: 20180730
  3. PIPERACILLIN AND TAZOBACTAM [Concomitant]
     Active Substance: PIPERACILLIN SODIUM\TAZOBACTAM SODIUM
     Indication: CHILLS
     Dosage: 4.5 G, TID (FOR 7 DAYS)
     Route: 042
     Dates: start: 20180514
  4. DOXORUBICINE [Suspect]
     Active Substance: DOXORUBICIN
     Indication: B-CELL LYMPHOMA
     Dosage: 100 MG, ONE TIME DOSE (1 TIME A DAY FOR 1 DAY)
     Route: 042
     Dates: start: 20180801, end: 20180801
  5. PIPERACILLIN AND TAZOBACTAM [Concomitant]
     Active Substance: PIPERACILLIN SODIUM\TAZOBACTAM SODIUM
     Indication: PYREXIA
  6. VINCRISTINE [Suspect]
     Active Substance: VINCRISTINE
     Indication: B-CELL LYMPHOMA
     Dosage: 3.46 MG, ONE TIME DOSE (1 TIME A DAY FOR 1 DAY)
     Route: 042
     Dates: start: 20180801, end: 20180801
  7. PREDNISONE. [Suspect]
     Active Substance: PREDNISONE
     Indication: B-CELL LYMPHOMA
     Dosage: 100 MG, QD (ONE TIME A DAY FOR 5 DAYS)
     Route: 048
     Dates: start: 20180801, end: 20180805
  8. CYCLOPHOSPHAMIDE. [Suspect]
     Active Substance: CYCLOPHOSPHAMIDE
     Indication: B-CELL LYMPHOMA
     Dosage: 1550 MG, ONE TIME DOSE (1 TIME A DAY FOR 1 DAY)
     Route: 042
     Dates: start: 20180801, end: 20180801
  9. PIPERACILLIN AND TAZOBACTAM [Concomitant]
     Active Substance: PIPERACILLIN SODIUM\TAZOBACTAM SODIUM
     Indication: ACUTE KIDNEY INJURY

REACTIONS (2)
  - Acute kidney injury [Recovered/Resolved]
  - Pyrexia [Recovered/Resolved]

NARRATIVE: CASE EVENT DATE: 20180814
